FAERS Safety Report 17351421 (Version 1)
Quarter: 2020Q1

REPORT INFORMATION
  Report Type: Spontaneous
  Country: PL (occurrence: PL)
  Receive Date: 20200130
  Receipt Date: 20200130
  Transmission Date: 20200409
  Serious: Yes (Other)
  Sender: FDA-Public Use
  Company Number: PL-BAXTER-2019BAX026371

PATIENT
  Age: 46 Year
  Sex: Female

DRUGS (3)
  1. DOXIL [Suspect]
     Active Substance: DOXORUBICIN HYDROCHLORIDE
     Indication: CHEMOTHERAPY
     Dosage: 60 MG/M2
     Route: 065
  2. ZOLEDRONIC ACID CLARIS, 4 MG/5 ML, KONCENTRAT DO SPORZADZANIA ROZTWORU [Suspect]
     Active Substance: ZOLEDRONIC ACID
     Indication: METASTASIS
     Dosage: 4 MG (EVERY 28 DAYS)
     Route: 042
  3. VINORELBINE [Suspect]
     Active Substance: VINORELBINE TARTRATE
     Indication: METASTASIS
     Dosage: 50 MG, QW3
     Route: 048
     Dates: start: 201801

REACTIONS (2)
  - Therapeutic response decreased [Unknown]
  - General physical health deterioration [Unknown]
